FAERS Safety Report 7774039-2 (Version None)
Quarter: 2011Q3

REPORT INFORMATION
  Report Type: 
  Country: None (occurrence: None)
  Receive Date: 20110923
  Receipt Date: 20110920
  Transmission Date: 20111222
  Serious: No
  Sender: FDA-Public Use
  Company Number: US-PFIZER INC-2011223068

PATIENT
  Sex: Male

DRUGS (2)
  1. PRISTIQ [Suspect]
     Dosage: UNK
     Dates: start: 20110601
  2. EFFEXOR [Suspect]
     Dosage: UNK

REACTIONS (3)
  - PARAESTHESIA [None]
  - PAIN [None]
  - WITHDRAWAL SYNDROME [None]
